FAERS Safety Report 7720186-0 (Version None)
Quarter: 2011Q3

REPORT INFORMATION
  Report Type: 
  Country: None (occurrence: None)
  Receive Date: 20110826
  Receipt Date: 20110826
  Transmission Date: 20111222
  Serious: No
  Sender: FDA-Public Use
  Company Number: None

PATIENT
  Sex: Female

DRUGS (1)
  1. EFFEXOR XR [Suspect]
     Indication: DEPRESSION
     Dosage: EFFEXOR XR BID BY MOUTH
     Route: 048

REACTIONS (3)
  - PRODUCT SUBSTITUTION ISSUE [None]
  - PANIC ATTACK [None]
  - ANXIETY [None]
